FAERS Safety Report 5960261-4 (Version None)
Quarter: 2008Q4

REPORT INFORMATION
  Report Type: 
  Country: None (occurrence: None)
  Receive Date: 20081120
  Receipt Date: 20081118
  Transmission Date: 20090506
  Serious: Yes (Hospitalization)
  Sender: FDA-Public Use
  Company Number: DE-WYE-G02242008

PATIENT
  Sex: Male
  Weight: 79 kg

DRUGS (7)
  1. TORISEL [Suspect]
     Indication: RENAL CANCER METASTATIC
     Route: 042
     Dates: start: 20080911, end: 20080918
  2. MORPHINE SULFATE INJ [Concomitant]
     Dosage: UNKNOWN
  3. CLEMASTINE FUMARATE [Concomitant]
     Indication: PREMEDICATION
     Route: 042
     Dates: start: 20080911, end: 20080918
  4. LYRICA [Concomitant]
     Dosage: UNKNOWN
  5. VERAPAMIL HYDROCHLORIDE [Concomitant]
     Dosage: UNKNOWN
  6. FENTANYL [Concomitant]
     Dosage: UNKNOWN
     Route: 062
  7. MACROGOL [Concomitant]
     Dosage: UNKNOWN

REACTIONS (3)
  - GENERAL PHYSICAL HEALTH DETERIORATION [None]
  - INTERSTITIAL LUNG DISEASE [None]
  - PNEUMONIA [None]
